FAERS Safety Report 7206368-5 (Version None)
Quarter: 2011Q1

REPORT INFORMATION
  Report Type: 
  Country: None (occurrence: None)
  Receive Date: 20110103
  Receipt Date: 20110103
  Transmission Date: 20110831
  Serious: Yes (Hospitalization)
  Sender: FDA-Public Use
  Company Number: PHHO2007DE11749

PATIENT
  Sex: Female
  Weight: 74 kg

DRUGS (3)
  1. CERTICAN [Suspect]
     Indication: CONGENITAL CYSTIC KIDNEY DISEASE
     Dosage: UNK
     Route: 048
     Dates: start: 20070202, end: 20070717
  2. VALSARTAN [Concomitant]
  3. PANTOPRAZOLE [Concomitant]

REACTIONS (3)
  - MENSTRUATION IRREGULAR [None]
  - MENORRHAGIA [None]
  - OVARIAN CYST [None]
